FAERS Safety Report 13003943 (Version 3)
Quarter: 2017Q1

REPORT INFORMATION
  Report Type: Report from Study
  Country: US (occurrence: US)
  Receive Date: 20161206
  Receipt Date: 20170123
  Transmission Date: 20170428
  Serious: Yes (Hospitalization)
  Sender: FDA-Public Use
  Company Number: US-EXELIXIS-XL18416007652

PATIENT
  Age: 84 Year
  Sex: Male
  Weight: 73.16 kg

DRUGS (12)
  1. COLACE [Concomitant]
     Active Substance: DOCUSATE SODIUM
  2. PANTOPRAZOLE [Concomitant]
     Active Substance: PANTOPRAZOLE SODIUM
  3. METOPROLOL TARTRATE. [Concomitant]
     Active Substance: METOPROLOL TARTRATE
  4. VITAMIN D [Concomitant]
     Active Substance: CHOLECALCIFEROL
  5. XL184 [Suspect]
     Active Substance: CABOZANTINIB
     Indication: PAPILLARY THYROID CANCER
     Dosage: 40 MG, QD
     Route: 048
     Dates: start: 20160511, end: 20161122
  6. ATORVASTATIN [Concomitant]
     Active Substance: ATORVASTATIN
  7. RANITIDINE. [Concomitant]
     Active Substance: RANITIDINE
  8. BISACODYL. [Concomitant]
     Active Substance: BISACODYL
  9. TIMOLOL MALEATE. [Concomitant]
     Active Substance: TIMOLOL MALEATE
  10. LATANOPROST. [Concomitant]
     Active Substance: LATANOPROST
  11. LEVOTHYROXINE. [Concomitant]
     Active Substance: LEVOTHYROXINE
  12. NITROGLYCERIN. [Concomitant]
     Active Substance: NITROGLYCERIN

REACTIONS (2)
  - Acute myocardial infarction [Unknown]
  - Haemoglobin decreased [Unknown]

NARRATIVE: CASE EVENT DATE: 20161201
